FAERS Safety Report 17380494 (Version 1)
Quarter: 2020Q1

REPORT INFORMATION
  Report Type: Spontaneous
  Country: US (occurrence: US)
  Receive Date: 20200206
  Receipt Date: 20200206
  Transmission Date: 20200409
  Serious: Yes (Life-Threatening, Other)
  Sender: FDA-Public Use
  Company Number: US-ABBVIE-19K-163-2740958-00

PATIENT
  Sex: Female

DRUGS (1)
  1. HUMIRA [Suspect]
     Active Substance: ADALIMUMAB
     Indication: COLITIS ULCERATIVE
     Route: 058
     Dates: start: 2016

REACTIONS (5)
  - Mobility decreased [Recovering/Resolving]
  - Loss of personal independence in daily activities [Unknown]
  - Poor peripheral circulation [Unknown]
  - Osteonecrosis [Unknown]
  - Drug hypersensitivity [Unknown]
